FAERS Safety Report 8917497 (Version 1)
Quarter: 2012Q4

REPORT INFORMATION
  Report Type: 
  Country: JP (occurrence: JP)
  Receive Date: 20121120
  Receipt Date: 20121120
  Transmission Date: 20130627
  Serious: Yes (Other)
  Sender: FDA-Public Use
  Company Number: JP-SANOFI-AVENTIS-2012SA084260

PATIENT
  Age: 73 Year
  Sex: Male

DRUGS (2)
  1. DOCETAXEL [Suspect]
     Indication: LUNG ADENOCARCINOMA STAGE IV
     Route: 065
     Dates: start: 20110826
  2. ANTINEOPLASTIC AGENTS [Concomitant]
     Indication: ADENOCARCINOMA LUNG STAGE IV
     Dates: start: 201012, end: 20110826

REACTIONS (2)
  - Papilloedema [Recovering/Resolving]
  - Vision blurred [Recovering/Resolving]
